FAERS Safety Report 13483993 (Version 3)
Quarter: 2017Q3

REPORT INFORMATION
  Report Type: Report from Study
  Country: US (occurrence: US)
  Receive Date: 20170426
  Receipt Date: 20170718
  Transmission Date: 20171127
  Serious: No
  Sender: FDA-Public Use
  Company Number: US-AMGEN-USASL2017060870

PATIENT
  Age: 48 Year
  Sex: Female

DRUGS (2)
  1. ENBREL [Suspect]
     Active Substance: ETANERCEPT
     Dosage: 50 MG, QWK
     Route: 065
  2. ENBREL [Suspect]
     Active Substance: ETANERCEPT
     Indication: RHEUMATOID ARTHRITIS
     Dosage: 50 MG, QWK
     Route: 065
     Dates: start: 201703

REACTIONS (15)
  - Drug ineffective [Unknown]
  - Night sweats [Unknown]
  - Bladder discomfort [Unknown]
  - Visual acuity reduced [Unknown]
  - Wrong technique in product usage process [Unknown]
  - Arthralgia [Unknown]
  - Chest pain [Unknown]
  - Thirst [Unknown]
  - Dyspnoea [Unknown]
  - Micturition urgency [Unknown]
  - Therapeutic response unexpected [Unknown]
  - Bladder pain [Unknown]
  - Urinary incontinence [Unknown]
  - Blood glucose abnormal [Unknown]
  - Injection site pain [Unknown]

NARRATIVE: CASE EVENT DATE: 2017
